FAERS Safety Report 19852756 (Version 1)
Quarter: 2021Q3

REPORT INFORMATION
  Report Type: Spontaneous
  Country: US (occurrence: US)
  Receive Date: 20210919
  Receipt Date: 20210919
  Transmission Date: 20211014
  Serious: No
  Sender: FDA-Public Use
  Company Number: US-CELGENEUS-USA-20210902417

PATIENT
  Age: 70 Year
  Sex: Male

DRUGS (2)
  1. REVLIMID [Suspect]
     Active Substance: LENALIDOMIDE
     Indication: MANTLE CELL LYMPHOMA
     Dosage: 20 MILLIGRAM
     Route: 048
     Dates: start: 202103
  2. REVLIMID [Suspect]
     Active Substance: LENALIDOMIDE
     Dosage: 5 MILLIGRAM
     Route: 048
     Dates: start: 202109

REACTIONS (10)
  - Constipation [Unknown]
  - Heart rate decreased [Unknown]
  - Back pain [Unknown]
  - Chromaturia [Unknown]
  - Stomatitis [Unknown]
  - Oropharyngeal pain [Unknown]
  - Vision blurred [Unknown]
  - Dyspnoea [Unknown]
  - Dizziness [Unknown]
  - Myalgia [Unknown]

NARRATIVE: CASE EVENT DATE: 20210808
